FAERS Safety Report 6266816-4 (Version None)
Quarter: 2009Q3

REPORT INFORMATION
  Report Type: 
  Country: None (occurrence: None)
  Receive Date: 20090709
  Receipt Date: 20090709
  Transmission Date: 20100115
  Serious: Yes (Disabling, Other)
  Sender: FDA-Public Use
  Company Number: None

PATIENT
  Sex: Female
  Weight: 73.6 kg

DRUGS (4)
  1. NASONEX [Suspect]
     Indication: COUGH
     Dosage: 50MCG USEDONLY 1 OR 2 TIMES
     Dates: start: 20070123, end: 20070228
  2. NASONEX [Suspect]
     Indication: NASOPHARYNGITIS
     Dosage: 50MCG USEDONLY 1 OR 2 TIMES
     Dates: start: 20070123, end: 20070228
  3. QUILIFEX [Concomitant]
  4. AZITHOMYCIN [Concomitant]

REACTIONS (1)
  - ANOSMIA [None]
